FAERS Safety Report 8607915-9 (Version None)
Quarter: 2012Q3

REPORT INFORMATION
  Report Type: 
  Country: None (occurrence: None)
  Receive Date: 20120731
  Receipt Date: 20120726
  Transmission Date: 20120928
  Serious: Yes (Other)
  Sender: FDA-Public Use
  Company Number: 2012032914

PATIENT
  Sex: Male
  Weight: 69.4003 kg

DRUGS (6)
  1. BENADRYL [Concomitant]
  2. PRIVIGEN [Suspect]
  3. ACETAMINOPHEN [Concomitant]
  4. PRIVIGEN [Suspect]
     Dosage: SEE IMAGE
     Route: 042
     Dates: start: 20120720
  5. PRIVIGEN [Suspect]
     Dosage: SEE IMAGE
     Route: 042
     Dates: start: 20120720
  6. PRIVIGEN [Suspect]
     Dosage: SEE IMAGE
     Route: 042
     Dates: start: 20110808

REACTIONS (2)
  - INFUSION SITE EXTRAVASATION [None]
  - INFUSION SITE ERYTHEMA [None]
